FAERS Safety Report 23338489 (Version 1)
Quarter: 2023Q4

REPORT INFORMATION
  Report Type: Spontaneous
  Country: US (occurrence: None)
  Receive Date: 20231223
  Receipt Date: 20231223
  Transmission Date: 20240110
  Serious: Yes (Death)
  Sender: FDA-Public Use
  Company Number: None

PATIENT
  Age: 8 Year
  Sex: Male
  Weight: 24.6 kg

DRUGS (9)
  1. MERCAPTOPURINE [Suspect]
     Active Substance: MERCAPTOPURINE
  2. METHOTREXATE [Suspect]
     Active Substance: METHOTREXATE
  3. VINCRISTINE SULFATE [Suspect]
     Active Substance: VINCRISTINE SULFATE
  4. ALBUTEROL [Concomitant]
  5. CYPROHEPTADINE [Concomitant]
     Active Substance: CYPROHEPTADINE
  6. GLUTAMINE [Concomitant]
     Active Substance: GLUTAMINE
  7. MELATONIN [Concomitant]
     Active Substance: MELATONIN
  8. PENTAMIDINE [Concomitant]
     Active Substance: PENTAMIDINE
  9. PEPCID [Concomitant]

REACTIONS (10)
  - Sepsis [None]
  - Cardiac arrest [None]
  - Pseudomonas test positive [None]
  - Blood culture positive [None]
  - Platelet count decreased [None]
  - Neutrophil count decreased [None]
  - Pneumonia [None]
  - Cough [None]
  - Nasal congestion [None]
  - Haematemesis [None]

NARRATIVE: CASE EVENT DATE: 20231214
